FAERS Safety Report 5501538-6 (Version None)
Quarter: 2007Q4

REPORT INFORMATION
  Report Type: 
  Country: None (occurrence: None)
  Receive Date: 20071030
  Receipt Date: 20071025
  Transmission Date: 20080405
  Serious: Yes (Other)
  Sender: FDA-Public Use
  Company Number: JP-ELI_LILLY_AND_COMPANY-JP200710000024

PATIENT
  Age: 73 Year
  Sex: Female

DRUGS (5)
  1. ZYPREXA FINE GRANULE 1% [Suspect]
     Indication: SCHIZOPHRENIA
     Dosage: 10 MG, DAILY (1/D)
     Route: 048
     Dates: start: 20070626, end: 20070101
  2. ZYPREXA [Suspect]
     Indication: SCHIZOPHRENIA
     Dosage: 10 MG, DAILY (1/D)
     Route: 048
     Dates: start: 20070101, end: 20070913
  3. EVAMYL [Concomitant]
  4. SILECE [Concomitant]
  5. ARICEPT [Concomitant]

REACTIONS (1)
  - PLATELET COUNT DECREASED [None]
